FAERS Safety Report 6682506-8 (Version None)
Quarter: 2010Q2

REPORT INFORMATION
  Report Type: 
  Country: None (occurrence: None)
  Receive Date: 20100415
  Receipt Date: 20100408
  Transmission Date: 20101027
  Serious: Yes (Other)
  Sender: FDA-Public Use
  Company Number: DE-NOVOPROD-302246

PATIENT
  Sex: Female
  Weight: 90 kg

DRUGS (9)
  1. VICTOZA [Suspect]
     Indication: TYPE 2 DIABETES MELLITUS
     Dosage: 1.2 MG, QD
     Route: 058
     Dates: start: 20090811, end: 20091124
  2. LANTUS [Concomitant]
     Indication: TYPE 2 DIABETES MELLITUS
     Dosage: 20 IU, QD
     Route: 058
     Dates: end: 20090809
  3. ACTRAPID                           /00030501/ [Concomitant]
     Indication: TYPE 2 DIABETES MELLITUS
     Dosage: UNK
     Dates: end: 20091106
  4. GLIMEPIRIDE [Concomitant]
     Indication: TYPE 2 DIABETES MELLITUS
     Dosage: 3 MG, QD
     Route: 048
     Dates: end: 20091106
  5. METFORMIN HCL [Concomitant]
     Dosage: 2 G, QD
     Route: 048
     Dates: end: 20091106
  6. APROVEL [Concomitant]
  7. BISOPROLOL [Concomitant]
  8. SIMVASTATIN [Suspect]
  9. ASPIRIN [Suspect]

REACTIONS (2)
  - ABDOMINAL PAIN UPPER [None]
  - LIPASE INCREASED [None]
